FAERS Safety Report 20914717 (Version 1)
Quarter: 2022Q2

REPORT INFORMATION
  Report Type: Spontaneous
  Country: CA (occurrence: CA)
  Receive Date: 20220604
  Receipt Date: 20220604
  Transmission Date: 20220721
  Serious: No
  Sender: FDA-Public Use
  Company Number: CA-ASTELLAS-2022US018939

PATIENT
  Sex: Male

DRUGS (1)
  1. FLOMAX [Suspect]
     Active Substance: TAMSULOSIN HYDROCHLORIDE
     Indication: Renal lithiasis prophylaxis
     Dosage: 0.4 MG, QD (AT BEDTIME)
     Route: 063
     Dates: start: 20220516

REACTIONS (1)
  - Exposure via breast milk [Unknown]
